FAERS Safety Report 4538620-6 (Version None)
Quarter: 2004Q4

REPORT INFORMATION
  Report Type: 
  Country: None (occurrence: None)
  Receive Date: 20041227
  Receipt Date: 20041221
  Transmission Date: 20050328
  Serious: Yes (Life-Threatening, Hospitalization)
  Sender: FDA-Public Use
  Company Number: US-BRISTOL-MYERS SQUIBB COMPANY-12803185

PATIENT
  Age: 56 Year
  Sex: Female

DRUGS (4)
  1. COUMADIN [Suspect]
     Indication: MYOCARDIAL INFARCTION
     Route: 048
     Dates: start: 20040614, end: 20040619
  2. MEVACOR [Concomitant]
  3. COZAAR [Concomitant]
  4. METFORMIN HCL [Concomitant]

REACTIONS (2)
  - DIVERTICULAR PERFORATION [None]
  - GASTROINTESTINAL HAEMORRHAGE [None]
